FAERS Safety Report 13817415 (Version 1)
Quarter: 2017Q3

REPORT INFORMATION
  Report Type: Spontaneous
  Country: JP (occurrence: JP)
  Receive Date: 20170731
  Receipt Date: 20170731
  Transmission Date: 20171127
  Serious: Yes (Death)
  Sender: FDA-Public Use
  Company Number: PHHY2017JP110184

PATIENT
  Age: 50 Year
  Sex: Male
  Weight: 70.6 kg

DRUGS (12)
  1. AMIODARONE [Suspect]
     Active Substance: AMIODARONE
     Indication: HYPERSENSITIVITY VASCULITIS
     Dosage: 100 MG, UNK
     Route: 048
  2. INSULIN LISPRO [Concomitant]
     Active Substance: INSULIN LISPRO
     Indication: DIABETES MELLITUS
     Dosage: MIXTURE PREPARATION UNITS IN THE MORNING, 3 UNITS AT NOON, AND 3 UNITS IN THE EVENING
     Route: 065
  3. NICORANDIL [Concomitant]
     Active Substance: NICORANDIL
     Indication: PRODUCT USED FOR UNKNOWN INDICATION
     Dosage: 15 MG,
     Route: 048
  4. BROTIZOLAM [Concomitant]
     Active Substance: BROTIZOLAM
     Indication: PRODUCT USED FOR UNKNOWN INDICATION
     Dosage: 0.25 MG,
     Route: 048
  5. HIDROCORTISON [Concomitant]
     Active Substance: HYDROCORTISONE
     Indication: INFECTION
     Dosage: 100 MG, UNK
     Route: 065
  6. PREDNISOLONE. [Concomitant]
     Active Substance: PREDNISOLONE
     Indication: SKIN ULCER
     Dosage: 30 MG, UNK
     Route: 048
  7. ACETYLSALICYLIC ACID [Concomitant]
     Active Substance: ASPIRIN
     Indication: PRODUCT USED FOR UNKNOWN INDICATION
     Dosage: 100 MG
     Route: 048
  8. BISOPROLOL [Concomitant]
     Active Substance: BISOPROLOL
     Indication: PRODUCT USED FOR UNKNOWN INDICATION
     Dosage: 0.625 MG,
     Route: 048
  9. LANSOPRAZOLE. [Concomitant]
     Active Substance: LANSOPRAZOLE
     Indication: PRODUCT USED FOR UNKNOWN INDICATION
     Dosage: 15 MG,
     Route: 048
  10. PREDNISOLONE. [Concomitant]
     Active Substance: PREDNISOLONE
     Indication: VASCULITIS
     Dosage: 60 MG, UNK
     Route: 048
  11. LANSOPRAZOLE. [Concomitant]
     Active Substance: LANSOPRAZOLE
     Dosage: 30 MG, UNK
     Route: 048
  12. PIPERACILLIN [Concomitant]
     Active Substance: PIPERACILLIN
     Indication: INFECTION
     Dosage: 2 G, UNK
     Route: 065

REACTIONS (7)
  - Disseminated intravascular coagulation [Fatal]
  - Thrombocytopenia [Fatal]
  - Vasculitis [Fatal]
  - Hypoalbuminaemia [Fatal]
  - Hypophosphataemia [Fatal]
  - Skin ulcer [Fatal]
  - Liver disorder [Fatal]
